FAERS Safety Report 5117749-8 (Version None)
Quarter: 2006Q3

REPORT INFORMATION
  Report Type: 
  Country: None (occurrence: None)
  Receive Date: 20060929
  Receipt Date: 20060428
  Transmission Date: 20061208
  Serious: Yes (Other)
  Sender: FDA-Public Use
  Company Number: JP-JPN-A200601449

PATIENT
  Age: 40 Year
  Sex: Male
  Weight: 78 kg

DRUGS (6)
  1. FLUTIDE DISKUS [Suspect]
     Indication: ASTHMA
     Dosage: 100MCG TWICE PER DAY
     Route: 055
     Dates: start: 20021017, end: 20051101
  2. THEO-DUR [Concomitant]
     Route: 048
     Dates: start: 20021015
  3. MUCODYNE [Concomitant]
     Dosage: 3U PER DAY
     Route: 048
     Dates: start: 20021015
  4. ALESION [Concomitant]
     Dosage: 1U PER DAY
     Route: 048
     Dates: start: 20021029
  5. BROCIN [Concomitant]
     Dosage: 8ML PER DAY
     Route: 048
     Dates: start: 20021021
  6. EPADEL [Concomitant]
     Dosage: 600MG PER DAY
     Route: 048
     Dates: start: 20050805

REACTIONS (1)
  - DIABETES MELLITUS [None]
